FAERS Safety Report 7656924-5 (Version None)
Quarter: 2011Q3

REPORT INFORMATION
  Report Type: 
  Country: None (occurrence: None)
  Receive Date: 20110801
  Receipt Date: 20110718
  Transmission Date: 20111222
  Serious: Yes (Hospitalization, Disabling)
  Sender: FDA-Public Use
  Company Number: OSCN-NO-0901S-0032

PATIENT
  Age: 63 Year
  Sex: Male

DRUGS (8)
  1. EPOETIN BETA (NEORECORMON) (EPOETIN BETA) [Concomitant]
  2. CALCIUM ACETATE (PHIS-EX) (CALCIUM ACETATE) [Concomitant]
  3. AMLODIPIN (NORVASC) (AMLODIPINE) [Concomitant]
  4. OMNISCAN [Suspect]
     Indication: PRODUCT USED FOR UNKNOWN INDICATION
     Dosage: 40 ML, SINGLE DOSE, INTRAVENOUS
     Route: 042
     Dates: start: 20051205, end: 20051205
  5. PANTOPRAZOL (PANTOLOC) (PANTOPRAZOLE) [Concomitant]
  6. GADOLINIUM (UNSPECIFIED) (GADOLINOUM) [Suspect]
     Indication: RENAL TRANSPLANT
     Dates: start: 20030701, end: 20030701
  7. DIALYSIS VITAMINS (MULTIVITAMINS) [Concomitant]
  8. RAMIPRIL (TRIATEC) (RAMIPRIL) [Concomitant]

REACTIONS (14)
  - FLUID OVERLOAD [None]
  - PAIN IN EXTREMITY [None]
  - HEPATIC FAILURE [None]
  - DRUG HYPERSENSITIVITY [None]
  - TOXICITY TO VARIOUS AGENTS [None]
  - ASTHENIA [None]
  - ARTHRALGIA [None]
  - OEDEMA PERIPHERAL [None]
  - JOINT SWELLING [None]
  - GAIT DISTURBANCE [None]
  - DYSPHAGIA [None]
  - PULMONARY ARTERIAL PRESSURE INCREASED [None]
  - COLON CANCER [None]
  - VOMITING [None]
